FAERS Safety Report 16985886 (Version 1)
Quarter: 2019Q4

REPORT INFORMATION
  Report Type: Spontaneous
  Country: US (occurrence: US)
  Receive Date: 20190918
  Receipt Date: 20190918
  Transmission Date: 20200122
  Serious: No
  Sender: FDA-Public Use
  Company Number: None

PATIENT
  Age: 72 Year
  Sex: Female

DRUGS (1)
  1. VYNDAQEL [Suspect]
     Active Substance: TAFAMIDIS MEGLUMINE
     Route: 048

REACTIONS (4)
  - Refusal of treatment by patient [None]
  - Chest pain [None]
  - Therapy cessation [None]
  - Amnesia [None]

NARRATIVE: CASE EVENT DATE: 20190916
